FAERS Safety Report 16890910 (Version 1)
Quarter: 2019Q4

REPORT INFORMATION
  Report Type: Spontaneous
  Country: US (occurrence: US)
  Receive Date: 20190812
  Receipt Date: 20190812
  Transmission Date: 20200122
  Serious: No
  Sender: FDA-Public Use
  Company Number: None

PATIENT
  Sex: Female

DRUGS (7)
  1. OCALIVA [Suspect]
     Active Substance: OBETICHOLIC ACID
     Indication: PRIMARY BILIARY CHOLANGITIS
     Route: 048
     Dates: start: 20190415
  2. VITAMIN C [Concomitant]
     Active Substance: ASCORBIC ACID
  3. SIMVASTATIN. [Concomitant]
     Active Substance: SIMVASTATIN
  4. ACTIGALL [Concomitant]
     Active Substance: URSODIOL
  5. LEVOTHYROXIN [Concomitant]
     Active Substance: LEVOTHYROXINE
  6. METFORMIN [Concomitant]
     Active Substance: METFORMIN HYDROCHLORIDE
  7. VITAMIN B6 [Concomitant]
     Active Substance: PYRIDOXINE HYDROCHLORIDE

REACTIONS (3)
  - Arthralgia [None]
  - Rash [None]
  - Pruritus [None]
